FAERS Safety Report 21750060 (Version 1)
Quarter: 2022Q4

REPORT INFORMATION
  Report Type: Spontaneous
  Country: HR (occurrence: HR)
  Receive Date: 20221219
  Receipt Date: 20221219
  Transmission Date: 20230113
  Serious: Yes (Other)
  Sender: FDA-Public Use
  Company Number: HR-BoehringerIngelheim-2022-BI-207465

PATIENT
  Age: 63 Year
  Sex: Male

DRUGS (4)
  1. NINTEDANIB [Suspect]
     Active Substance: NINTEDANIB
     Indication: Lung adenocarcinoma
  2. NINTEDANIB [Suspect]
     Active Substance: NINTEDANIB
  3. NINTEDANIB [Suspect]
     Active Substance: NINTEDANIB
  4. DOCETAXEL [Concomitant]
     Active Substance: DOCETAXEL
     Indication: Lung adenocarcinoma

REACTIONS (7)
  - Effusion [Recovered/Resolved]
  - Radiotherapy to bone [Unknown]
  - Neutropenia [Recovered/Resolved]
  - Nausea [Recovered/Resolved]
  - Diarrhoea [Recovered/Resolved]
  - Decreased appetite [Recovered/Resolved]
  - Dyspepsia [Recovered/Resolved]
